FAERS Safety Report 16067770 (Version 1)
Quarter: 2019Q2

REPORT INFORMATION
  Report Type: Spontaneous
  Country: US (occurrence: US)
  Receive Date: 20190313
  Receipt Date: 20190313
  Transmission Date: 20190711
  Serious: Yes (Other)
  Sender: FDA-Public Use
  Company Number: None

PATIENT
  Age: 65 Year
  Sex: Female
  Weight: 81 kg

DRUGS (4)
  1. SYNTHROID [Concomitant]
     Active Substance: LEVOTHYROXINE SODIUM
  2. CA [Concomitant]
  3. VIT D [Concomitant]
     Active Substance: VITAMIN D NOS
  4. RECLAST [Suspect]
     Active Substance: ZOLEDRONIC ACID
     Indication: OSTEOPOROSIS
     Dosage: ?          OTHER FREQUENCY:YEARLY IV;?
     Route: 042
     Dates: start: 20190311, end: 20190311

REACTIONS (5)
  - Hyperhidrosis [None]
  - Influenza like illness [None]
  - Pain [None]
  - Tremor [None]
  - Chills [None]

NARRATIVE: CASE EVENT DATE: 20190311
